FAERS Safety Report 5117332-4 (Version None)
Quarter: 2006Q3

REPORT INFORMATION
  Report Type: 
  Country: None (occurrence: None)
  Receive Date: 20060929
  Receipt Date: 20060725
  Transmission Date: 20061208
  Serious: Yes (Life-Threatening, Hospitalization)
  Sender: FDA-Public Use
  Company Number: 2006AP03467

PATIENT
  Age: 24249 Day
  Sex: Male

DRUGS (10)
  1. OMEPRAZOLE [Suspect]
     Indication: GASTRIC ULCER
     Route: 048
     Dates: start: 20060601, end: 20060630
  2. OMEPRAZOLE [Suspect]
     Route: 048
     Dates: start: 20060701, end: 20060702
  3. MUCOSTA [Suspect]
     Indication: GASTRIC ULCER
     Route: 048
     Dates: start: 20060601, end: 20060630
  4. SOLCOSERYL [Concomitant]
     Route: 041
     Dates: start: 20060602, end: 20060610
  5. SOLCOSERYL [Concomitant]
     Route: 041
     Dates: start: 20060630
  6. SULCAIN [Concomitant]
     Indication: GASTRIC ULCER
     Route: 048
     Dates: start: 20060601, end: 20060605
  7. SULCAIN [Concomitant]
     Route: 048
     Dates: start: 20060630, end: 20060630
  8. SOLDEM 3AG [Concomitant]
     Route: 041
     Dates: start: 20060602, end: 20060610
  9. SOLDEM 3AG [Concomitant]
     Route: 041
     Dates: start: 20060630
  10. ALLOID G [Concomitant]
     Route: 048
     Dates: start: 20060630

REACTIONS (6)
  - BRADYCARDIA [None]
  - HEPATIC FUNCTION ABNORMAL [None]
  - HYPOTENSION [None]
  - LEUKOPENIA [None]
  - NEUTROPENIA [None]
  - THROMBOCYTOPENIA [None]
